FAERS Safety Report 7898748-X (Version None)
Quarter: 2011Q4

REPORT INFORMATION
  Report Type: 
  Country: None (occurrence: None)
  Receive Date: 20111107
  Receipt Date: 20101216
  Transmission Date: 20120403
  Serious: No
  Sender: FDA-Public Use
  Company Number: US-ABBOTT-10P-163-0692608-00

PATIENT
  Sex: Female
  Weight: 74.456 kg

DRUGS (9)
  1. METOPROLOL SUCCINATE [Concomitant]
     Indication: BLOOD PRESSURE
  2. AMLODIPINE [Concomitant]
     Indication: BLOOD PRESSURE
  3. ASPIRIN [Concomitant]
     Indication: PRODUCT USED FOR UNKNOWN INDICATION
  4. INSULIN [Concomitant]
     Indication: DIABETES MELLITUS
     Dosage: 9 U BEFORE MEALS AND 42 U AT HS 42U
  5. TRICOR [Suspect]
     Indication: BLOOD CHOLESTEROL
     Dates: start: 20040701
  6. ALPRAZOLAM [Concomitant]
     Indication: STRESS
  7. SIMVASTATIN [Concomitant]
     Indication: PRODUCT USED FOR UNKNOWN INDICATION
  8. LITHIUM CITRATE [Concomitant]
     Indication: DEPRESSION
     Dates: start: 19920101
  9. TRAVATAN [Concomitant]
     Indication: GLAUCOMA
     Dosage: EYE

REACTIONS (5)
  - MUSCULAR WEAKNESS [None]
  - ACNE [None]
  - SKIN WRINKLING [None]
  - SKIN ATROPHY [None]
  - BREAST ATROPHY [None]
